FAERS Safety Report 4711670-2 (Version None)
Quarter: 2005Q2

REPORT INFORMATION
  Report Type: 
  Country: None (occurrence: None)
  Receive Date: 20050629
  Receipt Date: 20050502
  Transmission Date: 20051028
  Serious: No
  Sender: FDA-Public Use
  Company Number: 05P-163-0299012-00

PATIENT
  Age: 70 Year
  Sex: Female
  Weight: 56.6996 kg

DRUGS (6)
  1. HUMIRA [Suspect]
     Indication: RHEUMATOID ARTHRITIS
     Dosage: 40 MG, 1 IN 2 WK, SUBCUTANEOUS
     Route: 058
     Dates: start: 20050315, end: 20050419
  2. NIFEDIPINE [Concomitant]
  3. SERTRALINE HYDROCHLORIDE [Concomitant]
  4. OXYDODONE [Concomitant]
  5. ZITHROMAX [Concomitant]
  6. ALPRAZOLAM [Concomitant]

REACTIONS (5)
  - CANDIDIASIS [None]
  - INJECTION SITE HAEMORRHAGE [None]
  - PRURITUS GENERALISED [None]
  - RASH [None]
  - VOMITING [None]
